FAERS Safety Report 4986116-X (Version None)
Quarter: 2006Q2

REPORT INFORMATION
  Report Type: 
  Country: None (occurrence: None)
  Receive Date: 20060428
  Receipt Date: 20060418
  Transmission Date: 20061013
  Serious: Yes (Death)
  Sender: FDA-Public Use
  Company Number: US-SANOFI-SYNTHELABO-A03200602534

PATIENT
  Sex: Female
  Weight: 80.27 kg

DRUGS (7)
  1. PLAVIX [Suspect]
     Indication: CEREBROVASCULAR ACCIDENT
     Route: 048
  2. HUMULIN INSULIN [Concomitant]
     Dosage: 70/30: 32 UNITS QAM 27 UNITS QPM
     Route: 058
  3. THEOPHYLLINE [Concomitant]
     Route: 048
  4. NEXIUM [Concomitant]
     Dosage: UNK
     Route: 048
  5. CLONIDINE [Concomitant]
     Dosage: UNK
     Route: 048
  6. AMITRIPTYLINE HCL [Concomitant]
     Dosage: UNK
     Route: 048
  7. HYDROCHLOROTHIAZIDE [Concomitant]
     Dosage: 2 TABLETS DAILY
     Route: 048

REACTIONS (1)
  - PNEUMONIA [None]
